FAERS Safety Report 9090120 (Version 1)
Quarter: 2013Q1

REPORT INFORMATION
  Report Type: Report from Study
  Country: US (occurrence: US)
  Receive Date: 20130130
  Receipt Date: 20130130
  Transmission Date: 20140127
  Serious: No
  Sender: FDA-Public Use
  Company Number: US-ABBOTT-12P-163-0980765-00

PATIENT
  Age: 37 Year
  Sex: Male

DRUGS (3)
  1. HUMIRA [Suspect]
     Indication: CROHN^S DISEASE
     Dates: start: 2009
  2. VITAMIN B12 [Concomitant]
     Indication: PRODUCT USED FOR UNKNOWN INDICATION
  3. AVOCAR [Concomitant]
     Indication: HYPERTENSION
     Dosage: 10MG DAILY

REACTIONS (4)
  - Nausea [Not Recovered/Not Resolved]
  - Frequent bowel movements [Unknown]
  - Dizziness [Unknown]
  - Hypertension [Unknown]
